FAERS Safety Report 7118972-3 (Version None)
Quarter: 2010Q4

REPORT INFORMATION
  Report Type: 
  Country: None (occurrence: None)
  Receive Date: 20101123
  Receipt Date: 20101116
  Transmission Date: 20110411
  Serious: Yes (Hospitalization, Congenital Anomaly)
  Sender: FDA-Public Use
  Company Number: A0681545A

PATIENT
  Sex: Female

DRUGS (2)
  1. PAXIL [Suspect]
     Indication: DEPRESSION
     Dosage: 10MG UNKNOWN
     Dates: start: 20010301
  2. PRENATAL VITAMINS [Concomitant]

REACTIONS (8)
  - CONGENITAL ANOMALY [None]
  - CONGENITAL AORTIC STENOSIS [None]
  - DRUG EXPOSURE DURING PREGNANCY [None]
  - KIDNEY MALFORMATION [None]
  - MULTIPLE CONGENITAL ABNORMALITIES [None]
  - PATENT DUCTUS ARTERIOSUS [None]
  - PULMONARY ARTERY STENOSIS CONGENITAL [None]
  - RENAL FAILURE ACUTE [None]
